FAERS Safety Report 17733581 (Version 3)
Quarter: 2020Q3

REPORT INFORMATION
  Report Type: Spontaneous
  Country: US (occurrence: US)
  Receive Date: 20200501
  Receipt Date: 20200904
  Transmission Date: 20201102
  Serious: Yes (Hospitalization)
  Sender: FDA-Public Use
  Company Number: NVSC2020US117010

PATIENT
  Age: 28 Year
  Sex: Male
  Weight: 62 kg

DRUGS (5)
  1. NACL [Concomitant]
     Active Substance: SODIUM CHLORIDE
     Indication: PRODUCT USED FOR UNKNOWN INDICATION
     Dosage: 1 L, 500 ML/HR
     Route: 065
     Dates: start: 20200429
  2. OXYCONTIN [Concomitant]
     Active Substance: OXYCODONE HYDROCHLORIDE
     Indication: PAIN
     Route: 065
  3. L GLUTAMINE [Concomitant]
     Active Substance: GLUTAMINE
     Indication: SICKLE CELL DISEASE
     Route: 065
  4. TORADOL [Concomitant]
     Active Substance: KETOROLAC TROMETHAMINE
     Indication: PRODUCT USED FOR UNKNOWN INDICATION
     Dosage: 30 MG, UNKNOWN
     Route: 065
     Dates: start: 20200429
  5. ADAKVEO [Suspect]
     Active Substance: CRIZANLIZUMAB-TMCA
     Indication: SICKLE CELL ANAEMIA WITH CRISIS
     Dosage: 5 MG/KG, QMO
     Route: 042
     Dates: start: 20200429, end: 20200429

REACTIONS (6)
  - Chest pain [Unknown]
  - Heart rate increased [Unknown]
  - Sickle cell anaemia with crisis [Recovered/Resolved]
  - Nausea [Unknown]
  - Infection [Unknown]
  - Hypotension [Recovered/Resolved]

NARRATIVE: CASE EVENT DATE: 20200429
